FAERS Safety Report 8942211 (Version 1)
Quarter: 2012Q4

REPORT INFORMATION
  Report Type: Spontaneous
  Country: US (occurrence: None)
  Receive Date: 20121129
  Receipt Date: 20121129
  Transmission Date: 20130627
  Serious: Yes (Other)
  Sender: FDA-Public Use
  Company Number: None

PATIENT
  Age: 55 Year
  Sex: Male

DRUGS (1)
  1. PROCRIT [Suspect]
     Indication: ANEMIA
     Route: 058
     Dates: start: 20120905

REACTIONS (2)
  - Anxiety [None]
  - Palpitations [None]
